FAERS Safety Report 5085431-1 (Version None)
Quarter: 2006Q3

REPORT INFORMATION
  Report Type: 
  Country: None (occurrence: None)
  Receive Date: 20060816
  Receipt Date: 20060511
  Transmission Date: 20061208
  Serious: Yes (Hospitalization, Other)
  Sender: FDA-Public Use
  Company Number: 2006S1000098

PATIENT
  Sex: Male

DRUGS (1)
  1. INOMAX [Suspect]
     Indication: ACCIDENTAL EXPOSURE
     Dosage: INH_GAS; CONT
     Dates: start: 20060401, end: 20060401

REACTIONS (4)
  - ACCIDENTAL EXPOSURE [None]
  - BRONCHITIS [None]
  - DEVICE MALFUNCTION [None]
  - INJURY [None]
